FAERS Safety Report 9398365 (Version 1)
Quarter: 2013Q3

REPORT INFORMATION
  Report Type: Spontaneous
  Country: US (occurrence: US)
  Receive Date: 20130712
  Receipt Date: 20130712
  Transmission Date: 20140515
  Serious: No
  Sender: FDA-Public Use
  Company Number: US-GLAXOSMITHKLINE-A1009173A

PATIENT
  Age: 67 Year
  Sex: Female

DRUGS (2)
  1. FLOVENT [Suspect]
     Indication: ASTHMA
     Dosage: 2PUFF TWICE PER DAY
     Route: 055
     Dates: start: 2008
  2. NO CONCURRENT MEDICATION [Concomitant]

REACTIONS (3)
  - Upper-airway cough syndrome [Not Recovered/Not Resolved]
  - Cough [Unknown]
  - Expired drug administered [Unknown]
